FAERS Safety Report 16080293 (Version 1)
Quarter: 2019Q1

REPORT INFORMATION
  Report Type: Spontaneous
  Country: US (occurrence: US)
  Receive Date: 20190315
  Receipt Date: 20190315
  Transmission Date: 20190418
  Serious: No
  Sender: FDA-Public Use
  Company Number: US-PTC THERAPEUTICS, INC.-US-2018PTC001026

PATIENT
  Sex: Male

DRUGS (3)
  1. EMFLAZA [Suspect]
     Active Substance: DEFLAZACORT
     Indication: DUCHENNE MUSCULAR DYSTROPHY
     Dosage: 30 MG, QD
     Route: 048
     Dates: start: 20170621, end: 20181001
  2. EMFLAZA [Suspect]
     Active Substance: DEFLAZACORT
     Dosage: 7.5 MG, QOD
  3. EMFLAZA [Suspect]
     Active Substance: DEFLAZACORT
     Dosage: 36 MG, QD
     Route: 048
     Dates: start: 20180410, end: 20181008

REACTIONS (8)
  - Repetitive speech [Unknown]
  - Depression [Unknown]
  - Psychotic disorder [Unknown]
  - Dyskinesia [Unknown]
  - Anxiety [Unknown]
  - Substance-induced psychotic disorder [Unknown]
  - Abnormal behaviour [Unknown]
  - Paranoia [Unknown]

NARRATIVE: CASE EVENT DATE: 2018
